FAERS Safety Report 5321596-1 (Version None)
Quarter: 2007Q2

REPORT INFORMATION
  Report Type: 
  Country: None (occurrence: None)
  Receive Date: 20070510
  Receipt Date: 20070502
  Transmission Date: 20071010
  Serious: Yes (Other)
  Sender: FDA-Public Use
  Company Number: US-ROCHE-495590

PATIENT
  Age: 65 Year
  Sex: Male
  Weight: 86.2 kg

DRUGS (1)
  1. BONIVA [Suspect]
     Indication: OSTEOPOROSIS
     Route: 048
     Dates: start: 20061001

REACTIONS (5)
  - DIARRHOEA [None]
  - NAUSEA [None]
  - ORTHOSTATIC HYPOTENSION [None]
  - VENTRICULAR TACHYCARDIA [None]
  - VOMITING [None]
